FAERS Safety Report 7222646-8 (Version None)
Quarter: 2011Q1

REPORT INFORMATION
  Report Type: 
  Country: None (occurrence: None)
  Receive Date: 20110106
  Receipt Date: 20110106
  Transmission Date: 20110831
  Serious: Yes (Life-Threatening)
  Sender: FDA-Public Use
  Company Number: None

PATIENT
  Age: 54 Year
  Sex: Female
  Weight: 77.5651 kg

DRUGS (1)
  1. CLINDAMYCIN HCL [Suspect]
     Indication: TOOTH INFECTION
     Dosage: ONE CAPSULE EVERY 6 HOURS FOR ONE WEEK DENTAL
     Route: 004
     Dates: start: 20101224, end: 20101225

REACTIONS (7)
  - SWELLING [None]
  - DYSPNOEA [None]
  - OEDEMA PERIPHERAL [None]
  - BLISTER [None]
  - ERYTHEMA [None]
  - SKIN EXFOLIATION [None]
  - LOCAL SWELLING [None]
